FAERS Safety Report 8040026-2 (Version None)
Quarter: 2012Q1

REPORT INFORMATION
  Report Type: 
  Country: None (occurrence: None)
  Receive Date: 20120111
  Receipt Date: 20111223
  Transmission Date: 20120608
  Serious: No
  Sender: FDA-Public Use
  Company Number: US-AMGEN-USASP2011052825

PATIENT
  Age: 11 Year
  Sex: Female
  Weight: 30.9 kg

DRUGS (3)
  1. ACETAMINOPHEN [Concomitant]
     Indication: PAIN
     Dosage: UNK UNK, PRN, AS NEEDED
     Route: 048
  2. ENBREL [Suspect]
     Indication: JUVENILE ARTHRITIS
     Dosage: 20 MG, Q2WK
     Route: 058
     Dates: start: 20060101
  3. PSYLLIUM                           /01328801/ [Concomitant]
     Dosage: UNK
     Route: 048

REACTIONS (4)
  - DIARRHOEA [None]
  - CONSTIPATION [None]
  - DECREASED APPETITE [None]
  - ABDOMINAL PAIN UPPER [None]
